FAERS Safety Report 4516874-X (Version None)
Quarter: 2004Q4

REPORT INFORMATION
  Report Type: 
  Country: None (occurrence: None)
  Receive Date: 20041029
  Receipt Date: 20040713
  Transmission Date: 20050328
  Serious: No
  Sender: FDA-Public Use
  Company Number: 2004-120341-NL

PATIENT
  Age: 32 Year
  Sex: Female

DRUGS (6)
  1. NUVARING [Suspect]
     Indication: CONTRACEPTION
     Dosage: DF DAILY VAGINAL
     Route: 067
     Dates: start: 20030301, end: 20040710
  2. TYLENOL (CAPLET) [Concomitant]
  3. MOTRIN [Concomitant]
  4. ANTIBIOTIC [Concomitant]
  5. VAGISIL [Concomitant]
  6. MONISTAT [Concomitant]

REACTIONS (9)
  - AMENORRHOEA [None]
  - DYSPAREUNIA [None]
  - DYSURIA [None]
  - GENITALIA EXTERNAL PAINFUL [None]
  - GIARDIASIS [None]
  - MEDICAL DEVICE CHANGE [None]
  - VAGINAL MYCOSIS [None]
  - VAGINAL SWELLING [None]
  - VULVOVAGINAL DISCOMFORT [None]
